FAERS Safety Report 21251138 (Version 1)
Quarter: 2022Q3

REPORT INFORMATION
  Report Type: Spontaneous
  Country: US (occurrence: US)
  Receive Date: 20220824
  Receipt Date: 20220824
  Transmission Date: 20221027
  Serious: Yes (Other)
  Sender: FDA-Public Use
  Company Number: US-MALLINCKRODT-T202204061

PATIENT
  Age: 43 Year
  Sex: Female
  Weight: 103 kg

DRUGS (2)
  1. H.P. ACTHAR [Suspect]
     Active Substance: CORTICOTROPIN
     Indication: IgA nephropathy
     Dosage: 40 IU, BIWEEK
     Route: 030
     Dates: start: 202011
  2. H.P. ACTHAR [Suspect]
     Active Substance: CORTICOTROPIN
     Indication: Proteinuria
     Dosage: TAPERED OFF DOSE, UNK
     Route: 030
     Dates: end: 202103

REACTIONS (3)
  - Vision blurred [Recovered/Resolved]
  - Idiopathic intracranial hypertension [Unknown]
  - Headache [Recovered/Resolved]

NARRATIVE: CASE EVENT DATE: 20210201
